FAERS Safety Report 7766262-8 (Version None)
Quarter: 2011Q3

REPORT INFORMATION
  Report Type: 
  Country: None (occurrence: None)
  Receive Date: 20110922
  Receipt Date: 20110916
  Transmission Date: 20111222
  Serious: Yes (Death)
  Sender: FDA-Public Use
  Company Number: AU-BRISTOL-MYERS SQUIBB COMPANY-15462328

PATIENT
  Age: 53 Year
  Sex: Male

DRUGS (8)
  1. SPIRIVA [Concomitant]
  2. PANTOPRAZOLE [Concomitant]
  3. FLUTICASONE PROPIONATE/SALMETEROL [Concomitant]
  4. CITALOPRAM HYDROBROMIDE [Concomitant]
  5. SPRYCEL [Suspect]
     Indication: CHRONIC MYELOID LEUKAEMIA
     Dates: start: 20070707, end: 20070801
  6. ASMOL [Concomitant]
  7. ANPEC [Concomitant]
  8. IPRATROPIUM BROMIDE [Concomitant]

REACTIONS (1)
  - EMPHYSEMA [None]
